FAERS Safety Report 24102247 (Version 1)
Quarter: 2024Q3

REPORT INFORMATION
  Report Type: Spontaneous
  Country: US (occurrence: US)
  Receive Date: 20240717
  Receipt Date: 20240717
  Transmission Date: 20241016
  Serious: No
  Sender: NOVO NORDISK
  Company Number: US-NOVOPROD-1192426

PATIENT
  Sex: Female

DRUGS (1)
  1. OZEMPIC [Suspect]
     Active Substance: SEMAGLUTIDE
     Indication: Type 2 diabetes mellitus
     Dosage: 0.25MG QW
     Route: 058
     Dates: start: 20240305

REACTIONS (9)
  - Hypoaesthesia [Unknown]
  - Feeling abnormal [Unknown]
  - Food craving [Unknown]
  - Paraesthesia [Unknown]
  - Asthenia [Unknown]
  - Dizziness [Unknown]
  - Blood glucose increased [Unknown]
  - Wrong technique in product usage process [Unknown]
  - Physical product label issue [Unknown]
